FAERS Safety Report 19227676 (Version 12)
Quarter: 2021Q2

REPORT INFORMATION
  Report Type: Report from Study
  Country: None (occurrence: IE)
  Receive Date: 20210506
  Receipt Date: 20210615
  Transmission Date: 20210717
  Serious: Yes (Hospitalization)
  Sender: FDA-Public Use
  Company Number: IE-ABBVIE-21K-229-3884580-00

PATIENT
  Sex: Female

DRUGS (13)
  1. DUODOPA [Suspect]
     Active Substance: CARBIDOPA\LEVODOPA
     Route: 050
     Dates: start: 202105, end: 202105
  2. DUODOPA [Suspect]
     Active Substance: CARBIDOPA\LEVODOPA
     Dosage: CONTINUOUS RATE REDUCED TO 2.6ML/HR, CONTINUOUS
     Route: 050
     Dates: start: 20210524, end: 20210526
  3. MOVICOL [Concomitant]
     Active Substance: POLYETHYLENE GLYCOL 3350\POTASSIUM CHLORIDE\SODIUM BICARBONATE\SODIUM CHLORIDE
     Indication: PRODUCT USED FOR UNKNOWN INDICATION
     Dosage: MOVICOL SACHET
     Route: 050
  4. SINEMET [Concomitant]
     Active Substance: CARBIDOPA\LEVODOPA
     Indication: PRODUCT USED FOR UNKNOWN INDICATION
     Dosage: HALF SINEMET CR
     Route: 050
  5. DUODOPA [Suspect]
     Active Substance: CARBIDOPA\LEVODOPA
     Dosage: CONTINUOUS RATE REDUCED TO 2.5 ML/HR, CONTINUOUS
     Route: 050
     Dates: start: 20210526, end: 20210528
  6. DUODOPA [Suspect]
     Active Substance: CARBIDOPA\LEVODOPA
     Dosage: CONTINUOUS RATE 2.3ML/HR AND EXTRA DOSE REDUCE TO 0.4ML
     Route: 050
     Dates: start: 20210528
  7. BETMIGA [Concomitant]
     Active Substance: MIRABEGRON
     Indication: PRODUCT USED FOR UNKNOWN INDICATION
     Route: 050
  8. DUODOPA [Suspect]
     Active Substance: CARBIDOPA\LEVODOPA
     Dosage: CONTINUES RATE DECREASED TO 2.8ML/HR, CONTINUOUS
     Route: 050
     Dates: start: 20210513, end: 202105
  9. CITALOPRAM [Concomitant]
     Active Substance: CITALOPRAM HYDROBROMIDE
     Indication: PRODUCT USED FOR UNKNOWN INDICATION
     Route: 050
  10. MADOPAR [Concomitant]
     Active Substance: BENSERAZIDE HYDROCHLORIDE\LEVODOPA
     Indication: PRODUCT USED FOR UNKNOWN INDICATION
     Dates: start: 2021
  11. MIRTAZAPINE. [Concomitant]
     Active Substance: MIRTAZAPINE
     Indication: PRODUCT USED FOR UNKNOWN INDICATION
     Route: 050
  12. DUODOPA [Suspect]
     Active Substance: CARBIDOPA\LEVODOPA
     Indication: PARKINSON^S DISEASE
     Dosage: CONTINUOUS, 1 CASSETTE
     Route: 050
     Dates: start: 20181002, end: 20210513
  13. DUODOPA [Suspect]
     Active Substance: CARBIDOPA\LEVODOPA
     Route: 050
     Dates: start: 202105, end: 20210524

REACTIONS (21)
  - Depressed mood [Recovered/Resolved]
  - Device deposit issue [Recovered/Resolved]
  - Bradykinesia [Recovered/Resolved]
  - Device issue [Not Recovered/Not Resolved]
  - Dyskinesia [Recovered/Resolved]
  - Therapeutic product effect variable [Recovered/Resolved]
  - Abdominal discomfort [Recovered/Resolved]
  - Faecaloma [Recovered/Resolved]
  - Dyskinesia [Recovered/Resolved]
  - Feeling abnormal [Recovered/Resolved]
  - Condition aggravated [Recovered/Resolved]
  - Device kink [Recovered/Resolved]
  - On and off phenomenon [Recovered/Resolved]
  - Stoma site discharge [Recovered/Resolved]
  - Mobility decreased [Recovered/Resolved]
  - Dystonia [Recovered/Resolved]
  - Hyperkinesia [Recovered/Resolved]
  - Anxiety [Recovered/Resolved]
  - General symptom [Recovered/Resolved]
  - Device leakage [Recovered/Resolved]
  - Device dislocation [Recovered/Resolved]

NARRATIVE: CASE EVENT DATE: 2021
